FAERS Safety Report 14768004 (Version 2)
Quarter: 2018Q2

REPORT INFORMATION
  Report Type: Spontaneous
  Country: IT (occurrence: IT)
  Receive Date: 20180417
  Receipt Date: 20180525
  Transmission Date: 20180711
  Serious: Yes (Other)
  Sender: FDA-Public Use
  Company Number: IT-BEH-2018089748

PATIENT
  Age: 65 Year
  Sex: Male

DRUGS (1)
  1. HUMAN IMMUNOGLOBULIN (NC) [Suspect]
     Active Substance: HUMAN IMMUNOGLOBULIN G
     Indication: CHRONIC INFLAMMATORY DEMYELINATING POLYRADICULONEUROPATHY
     Dosage: 400 MG/KG, QD
     Route: 042

REACTIONS (2)
  - Venous thrombosis limb [Recovered/Resolved]
  - Pulmonary embolism [Recovered/Resolved]
